FAERS Safety Report 5460880-8 (Version None)
Quarter: 2007Q3

REPORT INFORMATION
  Report Type: 
  Country: None (occurrence: None)
  Receive Date: 20070827
  Receipt Date: 20070405
  Transmission Date: 20080115
  Serious: Yes (Other)
  Sender: FDA-Public Use
  Company Number: 2007-0011733

PATIENT
  Age: 6 Month
  Sex: Male
  Weight: 5.5 kg

DRUGS (13)
  1. VESTIDE (CIDOFOVIR) [Suspect]
     Indication: PNEUMONIA ADENOVIRAL
     Dosage: 6  MG, 3 IN 1 WK, INTRAVENOUS, 4.5 MG, 2 IN 1 WK, INTRAVENOUS
     Route: 042
     Dates: start: 20070301, end: 20070402
  2. VESTIDE (CIDOFOVIR) [Suspect]
     Indication: PNEUMONIA ADENOVIRAL
     Dosage: 6  MG, 3 IN 1 WK, INTRAVENOUS, 4.5 MG, 2 IN 1 WK, INTRAVENOUS
     Route: 042
     Dates: start: 20070403
  3. SEPTRA [Concomitant]
  4. CEFEPIME [Concomitant]
  5. REGLAN [Concomitant]
  6. ZITHROMAX [Concomitant]
  7. DIFLUCAN [Concomitant]
  8. PREVACID [Concomitant]
  9. PROBENECID [Concomitant]
  10. IMMUNE GLOBULIN (IMMUNOGLOBULIN) [Concomitant]
  11. ALBUTEROL [Concomitant]
  12. ACETAMINOPHEN [Concomitant]
  13. BENADRYL [Concomitant]

REACTIONS (1)
  - HYPERCALCAEMIA [None]
